FAERS Safety Report 5526777-X (Version None)
Quarter: 2007Q4

REPORT INFORMATION
  Report Type: 
  Country: None (occurrence: None)
  Receive Date: 20071127
  Receipt Date: 20071116
  Transmission Date: 20080405
  Serious: Yes (Death)
  Sender: FDA-Public Use
  Company Number: CH-ROCHE-532592

PATIENT
  Age: 28 Year
  Sex: Male
  Weight: 70 kg

DRUGS (25)
  1. ROACCUTANE [Suspect]
     Dosage: OTHER INDICATION: RECURRENT PAPULOPUSTULAR ACNE
     Route: 048
     Dates: start: 19930101, end: 20050701
  2. METHADONE [Concomitant]
  3. HALCION [Concomitant]
  4. RISPERDAL [Concomitant]
  5. LIMBITROL [Concomitant]
  6. NOZINAN [Concomitant]
  7. TRUXAL [Concomitant]
  8. INDERAL [Concomitant]
     Indication: PALPITATIONS
  9. ZYPREXA [Concomitant]
  10. SOLATRAN [Concomitant]
  11. TRANXILIUM [Concomitant]
  12. CLOTHIAPINE [Concomitant]
  13. CLOTHIAPINE [Concomitant]
     Dosage: DRUG REPORTED AS ENTUMINE
  14. TOQUILONE [Concomitant]
  15. AUGMENTIN '250' [Concomitant]
     Indication: INJECTION SITE INFECTION
  16. MS CONTIN [Concomitant]
  17. VALIUM [Concomitant]
  18. BUPRENORPHINE HCL [Concomitant]
  19. DISTRANEURIN [Concomitant]
  20. ROHYPNOL [Concomitant]
  21. ATROPINE [Concomitant]
     Dosage: DRUG REPORTED AS BELLAFIT N
  22. LORAZEPAM [Concomitant]
  23. BUSPAR [Concomitant]
  24. XANAX [Concomitant]
  25. CITALOPRAM [Concomitant]

REACTIONS (1)
  - COMPLETED SUICIDE [None]
